FAERS Safety Report 5727964-8 (Version None)
Quarter: 2008Q2

REPORT INFORMATION
  Report Type: 
  Country: None (occurrence: None)
  Receive Date: 20080505
  Receipt Date: 20080423
  Transmission Date: 20081010
  Serious: Yes (Hospitalization)
  Sender: FDA-Public Use
  Company Number: JP-PFIZER INC-2008036014

PATIENT
  Sex: Female

DRUGS (12)
  1. ZOLOFT [Suspect]
     Indication: DEPRESSION
     Dosage: TEXT:25 OR 50MG QD
     Route: 048
     Dates: start: 20070720, end: 20080213
  2. SEROQUEL [Concomitant]
     Route: 048
  3. SELBEX [Concomitant]
     Route: 048
  4. MEILAX [Concomitant]
     Route: 048
  5. RESLIN [Concomitant]
     Route: 048
  6. SILECE [Concomitant]
     Route: 048
  7. OMEPRAL [Concomitant]
     Route: 048
  8. ZYRTEC [Concomitant]
     Route: 048
  9. SEPAZON [Concomitant]
     Route: 048
  10. TOLEDOMIN [Concomitant]
     Route: 048
  11. TETRAMIDE [Concomitant]
     Route: 048
  12. ALPRAZOLAM [Concomitant]
     Route: 048

REACTIONS (1)
  - DISSOCIATIVE DISORDER [None]
